FAERS Safety Report 5268138-7 (Version None)
Quarter: 2007Q1

REPORT INFORMATION
  Report Type: 
  Country: None (occurrence: None)
  Receive Date: 20070319
  Receipt Date: 20070308
  Transmission Date: 20070707
  Serious: Yes (Death, Hospitalization, Other)
  Sender: FDA-Public Use
  Company Number: US-ELI_LILLY_AND_COMPANY-US200703002512

PATIENT
  Age: 22 Year
  Sex: Female

DRUGS (7)
  1. ZYPREXA [Suspect]
     Dosage: 10 MG, 4/D
  2. EFFEXOR [Concomitant]
     Dosage: 225 MG, DAILY (1/D)
  3. ESKALITH [Concomitant]
     Dosage: 450 MG, 2/D
  4. ADDERALL XR 10 [Concomitant]
     Dosage: 40 MG, EACH MORNING
  5. TOPAMAX [Concomitant]
     Dosage: 400 MG, DAILY (1/D)
  6. CAMPRAL [Concomitant]
     Dosage: 999 MG, 2/D
  7. XANAX [Concomitant]
     Dosage: 2 MG, 2/D

REACTIONS (4)
  - DRUG TOXICITY [None]
  - JOINT INJURY [None]
  - PRESCRIBED OVERDOSE [None]
  - SUICIDAL IDEATION [None]
